FAERS Safety Report 18353189 (Version 10)
Quarter: 2021Q1

REPORT INFORMATION
  Report Type: Spontaneous
  Country: CA (occurrence: CA)
  Receive Date: 20201007
  Receipt Date: 20210319
  Transmission Date: 20210419
  Serious: Yes (Other)
  Sender: FDA-Public Use
  Company Number: CA-CELLTRION INC.-2020CA028499

PATIENT

DRUGS (11)
  1. INFLECTRA [Suspect]
     Active Substance: INFLIXIMAB-DYYB
     Dosage: 500 MG (10 MG/KG) Q 6 WEEKS
     Route: 042
     Dates: start: 20200821
  2. INFLECTRA [Suspect]
     Active Substance: INFLIXIMAB-DYYB
     Dosage: 1000 MG (EVERY 4 WEEK)
     Route: 042
     Dates: start: 20210304
  3. INFLECTRA [Suspect]
     Active Substance: INFLIXIMAB-DYYB
     Dosage: 1000 MG Q 6 WEEKS
     Route: 042
     Dates: start: 20201002
  4. INFLECTRA [Suspect]
     Active Substance: INFLIXIMAB-DYYB
     Dosage: 500 MG EVERY 6 WEEKS
     Route: 042
     Dates: start: 20201224
  5. INFLECTRA [Suspect]
     Active Substance: INFLIXIMAB-DYYB
     Dosage: 500 MG (10 MG/KG) Q 6 WEEKS
     Route: 042
     Dates: start: 20200821
  6. INFLECTRA [Suspect]
     Active Substance: INFLIXIMAB-DYYB
     Dosage: 500 MG EVERY 6 WEEKS
     Route: 042
     Dates: start: 20201113
  7. INFLECTRA [Suspect]
     Active Substance: INFLIXIMAB-DYYB
     Dosage: 500 MG (10 MG/KG) Q 6 WEEKS
     Route: 042
     Dates: start: 20200821
  8. INFLECTRA [Suspect]
     Active Substance: INFLIXIMAB-DYYB
     Dosage: 1000 MG Q 6 WEEKS
     Route: 042
     Dates: start: 20201002
  9. INFLECTRA [Suspect]
     Active Substance: INFLIXIMAB-DYYB
     Dosage: 1000 MG (EVERY 4 WEEK)
     Route: 042
     Dates: start: 20210204
  10. INFLECTRA [Suspect]
     Active Substance: INFLIXIMAB-DYYB
     Dosage: 1000 MG (EVERY 4 WEEK)
     Route: 042
     Dates: start: 20210204
  11. INFLECTRA [Suspect]
     Active Substance: INFLIXIMAB-DYYB
     Indication: CROHN^S DISEASE
     Dosage: 500 MG (10 MG/KG) Q 6 WEEKS
     Route: 042
     Dates: start: 20200710, end: 20200710

REACTIONS (5)
  - Off label use [Unknown]
  - Retinal detachment [Unknown]
  - Macular degeneration [Unknown]
  - Faecal calprotectin increased [Unknown]
  - Corneal abrasion [Recovered/Resolved]

NARRATIVE: CASE EVENT DATE: 20200710
